FAERS Safety Report 7325899-0 (Version None)
Quarter: 2011Q1

REPORT INFORMATION
  Report Type: 
  Country: None (occurrence: None)
  Receive Date: 20110302
  Receipt Date: 20110221
  Transmission Date: 20110831
  Serious: Yes (Hospitalization)
  Sender: FDA-Public Use
  Company Number: US-JNJFOC-20110207273

PATIENT
  Sex: Female

DRUGS (1)
  1. REMICADE [Suspect]
     Indication: RHEUMATOID ARTHRITIS
     Route: 042

REACTIONS (6)
  - BACK DISORDER [None]
  - IMPLANT SITE REACTION [None]
  - HIP FRACTURE [None]
  - OSTEOPOROSIS [None]
  - ABASIA [None]
  - PELVIC FRACTURE [None]
